FAERS Safety Report 6382178-6 (Version None)
Quarter: 2009Q3

REPORT INFORMATION
  Report Type: 
  Country: None (occurrence: None)
  Receive Date: 20090930
  Receipt Date: 20090917
  Transmission Date: 20100115
  Serious: Yes (Death)
  Sender: FDA-Public Use
  Company Number: JP-PFIZER INC-2009245237

PATIENT
  Age: 57 Year

DRUGS (1)
  1. REVATIO [Suspect]
     Dosage: 40 MG, 1X/DAY
     Route: 048
     Dates: start: 20090604, end: 20090611

REACTIONS (2)
  - DEATH [None]
  - HEADACHE [None]
